FAERS Safety Report 8592342-3 (Version None)
Quarter: 2012Q3

REPORT INFORMATION
  Report Type: 
  Country: None (occurrence: None)
  Receive Date: 20120814
  Receipt Date: 20120807
  Transmission Date: 20120928
  Serious: Yes (Other)
  Sender: FDA-Public Use
  Company Number: US-PFIZER INC-2010086140

PATIENT
  Age: 69 Year
  Sex: Male
  Weight: 112 kg

DRUGS (3)
  1. SUTENT [Suspect]
     Dosage: 37.5 MG, 1X/DAY, CYCLIC
     Dates: start: 20100121, end: 20100608
  2. ACTOS [Concomitant]
     Indication: TYPE 2 DIABETES MELLITUS
     Dosage: UNK, DAILY
  3. SUTENT [Suspect]
     Indication: GASTROINTESTINAL STROMAL TUMOUR
     Dosage: 25 MG, 1X/DAY, 42-DAY CYCLE (28/14)
     Dates: start: 20091204

REACTIONS (14)
  - ERYTHEMA [None]
  - AGEUSIA [None]
  - DRUG INTOLERANCE [None]
  - PETECHIAE [None]
  - HYPERKERATOSIS [None]
  - WHITE BLOOD CELL COUNT DECREASED [None]
  - DYSURIA [None]
  - RED BLOOD CELL COUNT DECREASED [None]
  - PALMAR-PLANTAR ERYTHRODYSAESTHESIA SYNDROME [None]
  - BLISTER [None]
  - SKIN HAEMORRHAGE [None]
  - PLATELET COUNT DECREASED [None]
  - OEDEMA PERIPHERAL [None]
  - WEIGHT DECREASED [None]
